FAERS Safety Report 8542840-3 (Version None)
Quarter: 2012Q3

REPORT INFORMATION
  Report Type: 
  Country: None (occurrence: None)
  Receive Date: 20120727
  Receipt Date: 20120719
  Transmission Date: 20120928
  Serious: No
  Sender: FDA-Public Use
  Company Number: US-BIOGENIDEC-2012BI026392

PATIENT
  Sex: Female

DRUGS (1)
  1. AVONEX [Suspect]
     Indication: MULTIPLE SCLEROSIS
     Route: 030
     Dates: start: 20100820

REACTIONS (5)
  - LOSS OF CONSCIOUSNESS [None]
  - HYPOAESTHESIA [None]
  - URINARY TRACT INFECTION [None]
  - ADVERSE EVENT [None]
  - PARAESTHESIA [None]
